FAERS Safety Report 7583589-3 (Version None)
Quarter: 2011Q2

REPORT INFORMATION
  Report Type: 
  Country: None (occurrence: None)
  Receive Date: 20110630
  Receipt Date: 20110621
  Transmission Date: 20111010
  Serious: Yes (Death, Hospitalization)
  Sender: FDA-Public Use
  Company Number: A0889425A

PATIENT
  Age: 13 Year
  Sex: Male

DRUGS (7)
  1. ALBUTEROL SULFATE AUTOHALER [Concomitant]
  2. ZYRTEC [Concomitant]
  3. RHINOCORT [Concomitant]
  4. ADVAIR DISKUS 100/50 [Suspect]
     Indication: ASTHMA
     Dosage: 1PUFF TWICE PER DAY
     Route: 055
     Dates: start: 20010817, end: 20080314
  5. SINGULAIR [Concomitant]
  6. XOPENEX [Concomitant]
  7. PROVENTIL [Concomitant]
     Dates: end: 20080314

REACTIONS (22)
  - RESPIRATORY ARREST [None]
  - STATUS ASTHMATICUS [None]
  - EMOTIONAL DISTRESS [None]
  - HYPERKALAEMIA [None]
  - CARDIO-RESPIRATORY ARREST [None]
  - MULTIPLE INJURIES [None]
  - LIP SWELLING [None]
  - OROPHARYNGEAL PAIN [None]
  - HYPOTENSION [None]
  - ASTHMA [None]
  - UPPER RESPIRATORY TRACT INFECTION [None]
  - PULSELESS ELECTRICAL ACTIVITY [None]
  - RENAL FAILURE ACUTE [None]
  - PAIN [None]
  - ECONOMIC PROBLEM [None]
  - CONVULSION [None]
  - PNEUMONIA [None]
  - GINGIVAL SWELLING [None]
  - CIRCULATORY COLLAPSE [None]
  - HYPOXIC-ISCHAEMIC ENCEPHALOPATHY [None]
  - METABOLIC ACIDOSIS [None]
  - VIRAL INFECTION [None]
